FAERS Safety Report 4618300-9 (Version None)
Quarter: 2005Q1

REPORT INFORMATION
  Report Type: 
  Country: None (occurrence: None)
  Receive Date: 20050323
  Receipt Date: 20050316
  Transmission Date: 20050727
  Serious: Yes (Other)
  Sender: FDA-Public Use
  Company Number: DE_050315416

PATIENT
  Age: 44 Year
  Sex: Female

DRUGS (5)
  1. XIGRIS [Suspect]
     Indication: BACTERIAL SEPSIS
     Dosage: 24 UG/KG/HR
     Dates: start: 20050305, end: 20050301
  2. MERONEM (MEROPENEM) [Concomitant]
  3. PENICILLIN [Concomitant]
  4. PANTOPRAZOLE SODIUM [Concomitant]
  5. ACC (ACETYLCYSTEINE M/G) [Concomitant]

REACTIONS (1)
  - THROMBOCYTOPENIA [None]
